FAERS Safety Report 4963246-X (Version None)
Quarter: 2006Q2

REPORT INFORMATION
  Report Type: 
  Country: None (occurrence: None)
  Receive Date: 20060405
  Receipt Date: 20050406
  Transmission Date: 20061013
  Serious: Yes (Hospitalization, Other)
  Sender: FDA-Public Use
  Company Number: US-MERCK-0504USA01056

PATIENT
  Age: 69 Year
  Sex: Female
  Weight: 91 kg

DRUGS (6)
  1. VIOXX [Suspect]
     Indication: SPINAL OSTEOARTHRITIS
     Route: 048
     Dates: start: 20000229, end: 20020328
  2. VIOXX [Suspect]
     Route: 048
     Dates: start: 20021031, end: 20040924
  3. VIOXX [Suspect]
     Indication: OSTEOARTHRITIS
     Route: 048
     Dates: start: 20000229, end: 20020328
  4. VIOXX [Suspect]
     Route: 048
     Dates: start: 20021031, end: 20040924
  5. ASPIRIN [Concomitant]
     Route: 065
  6. TYLENOL (CAPLET) [Concomitant]
     Route: 065

REACTIONS (21)
  - ARTHROPATHY [None]
  - BACK PAIN [None]
  - BRONCHITIS [None]
  - CARDIAC FAILURE CONGESTIVE [None]
  - CATARACT [None]
  - CEREBROVASCULAR ACCIDENT [None]
  - CHEST PAIN [None]
  - COUGH [None]
  - HAEMORRHOIDS [None]
  - HEADACHE [None]
  - INFECTION [None]
  - IRON DEFICIENCY ANAEMIA [None]
  - MALIGNANT MELANOMA OF SITES OTHER THAN SKIN [None]
  - NASAL CONGESTION [None]
  - NECK PAIN [None]
  - PAIN [None]
  - PEPTIC ULCER [None]
  - SPINAL COLUMN STENOSIS [None]
  - SPINAL OSTEOARTHRITIS [None]
  - URINARY TRACT INFECTION [None]
  - VOMITING [None]
